FAERS Safety Report 6888687-5 (Version None)
Quarter: 2010Q3

REPORT INFORMATION
  Report Type: 
  Country: None (occurrence: None)
  Receive Date: 20100730
  Receipt Date: 20071211
  Transmission Date: 20110219
  Serious: No
  Sender: FDA-Public Use
  Company Number: US-PFIZER INC-2007041566

PATIENT
  Sex: Male
  Weight: 92.53 kg

DRUGS (3)
  1. LIPITOR [Suspect]
     Indication: HYPERLIPIDAEMIA
     Dates: start: 19990101
  2. NORVASC [Suspect]
     Indication: HYPERTENSION
     Dates: start: 19990101
  3. COUMADIN [Concomitant]

REACTIONS (1)
  - GYNAECOMASTIA [None]
